FAERS Safety Report 14226932 (Version 16)
Quarter: 2018Q3

REPORT INFORMATION
  Report Type: Report from Study
  Country: JP (occurrence: JP)
  Receive Date: 20171127
  Receipt Date: 20180924
  Transmission Date: 20181010
  Serious: Yes (Hospitalization)
  Sender: FDA-Public Use
  Company Number: JP-PFIZER INC-2017504151

PATIENT
  Age: 49 Year
  Sex: Male
  Weight: 58 kg

DRUGS (13)
  1. AXITINIB [Suspect]
     Active Substance: AXITINIB
     Dosage: 3 MG, SINGLE
     Route: 048
     Dates: start: 20171213, end: 20171213
  2. AZUNOL [Concomitant]
     Active Substance: SODIUM GUALENATE
     Dosage: 1 DF, UNK
     Dates: start: 20171101, end: 20171216
  3. AXITINIB [Suspect]
     Active Substance: AXITINIB
     Dosage: 5 MG, 2X/DAY
     Route: 048
     Dates: start: 20171102, end: 20171116
  4. AXITINIB [Suspect]
     Active Substance: AXITINIB
     Dosage: 3 MG, 2X/DAY
     Route: 048
     Dates: start: 20171209, end: 20171212
  5. URSODIOL. [Concomitant]
     Active Substance: URSODIOL
     Dosage: 100 MG, UNK
     Dates: start: 20171018, end: 20171224
  6. CALONAL [Concomitant]
     Active Substance: ACETAMINOPHEN
     Dosage: 200 MG, UNK
     Dates: start: 20170929, end: 20171222
  7. FERROMIA [Concomitant]
     Active Substance: SODIUM FERROUS CITRATE
     Dosage: 50 MG, UNK
     Dates: start: 20171018, end: 20171031
  8. AXITINIB [Suspect]
     Active Substance: AXITINIB
     Indication: METASTATIC RENAL CELL CARCINOMA
     Dosage: 5 MG, 1X/DAY
     Route: 048
     Dates: start: 20171101, end: 20171101
  9. PEMBROLIZUMAB. [Suspect]
     Active Substance: PEMBROLIZUMAB
     Dosage: 200 MG, EVERY 3 WEEKS (CYCLE 2)
     Route: 042
     Dates: start: 20171208, end: 20171208
  10. HEPARINOID OIL BASED CREAM NICHIKO [Concomitant]
     Indication: PROPHYLAXIS
     Dosage: 1 DF, UNK
     Dates: start: 20171101, end: 20171216
  11. AXITINIB [Suspect]
     Active Substance: AXITINIB
     Dosage: 5 MG, SINGLE
     Route: 048
     Dates: start: 20171117, end: 20171117
  12. AXITINIB [Suspect]
     Active Substance: AXITINIB
     Dosage: 3 MG, SINGLE
     Route: 048
     Dates: start: 20171208, end: 20171208
  13. PEMBROLIZUMAB. [Suspect]
     Active Substance: PEMBROLIZUMAB
     Indication: METASTATIC RENAL CELL CARCINOMA
     Dosage: 200 MG, EVERY 3 WEEKS (VOLUME OF INFUSION: 108 ML)
     Route: 042
     Dates: start: 20171101, end: 20171101

REACTIONS (3)
  - Decreased appetite [Recovered/Resolved]
  - Condition aggravated [Recovered/Resolved]
  - Electrolyte imbalance [Recovered/Resolved]

NARRATIVE: CASE EVENT DATE: 20171110
